FAERS Safety Report 5826618-7 (Version None)
Quarter: 2008Q3

REPORT INFORMATION
  Report Type: 
  Country: None (occurrence: None)
  Receive Date: 20080728
  Receipt Date: 20080728
  Transmission Date: 20090109
  Serious: No
  Sender: FDA-Public Use
  Company Number: None

PATIENT
  Age: 48 Year
  Sex: Female
  Weight: 78.4723 kg

DRUGS (1)
  1. OXYCODONE HCL [Suspect]
     Indication: POSTOPERATIVE ANALGESIA
     Dosage: 1 TAB 4-6 HRS. PO
     Route: 048
     Dates: start: 20080721

REACTIONS (2)
  - INADEQUATE ANALGESIA [None]
  - PHARMACEUTICAL PRODUCT COMPLAINT [None]
